FAERS Safety Report 13742060 (Version 1)
Quarter: 2017Q3

REPORT INFORMATION
  Report Type: Spontaneous
  Country: FR (occurrence: FR)
  Receive Date: 20170711
  Receipt Date: 20170711
  Transmission Date: 20171127
  Serious: Yes (Disabling)
  Sender: FDA-Public Use
  Company Number: PHHY2010FR68031

PATIENT
  Sex: Male

DRUGS (3)
  1. CICLOSPORIN [Concomitant]
     Active Substance: CYCLOSPORINE
  2. CARTEOLOL (NVO) [Suspect]
     Active Substance: CARTEOLOL HYDROCHLORIDE
     Dosage: UNK
  3. VITAMIN A [Concomitant]
     Active Substance: VITAMIN A

REACTIONS (2)
  - Antinuclear antibody positive [Unknown]
  - Keratitis [Not Recovered/Not Resolved]

NARRATIVE: CASE EVENT DATE: 2009
